FAERS Safety Report 16278432 (Version 7)
Quarter: 2022Q1

REPORT INFORMATION
  Report Type: Spontaneous
  Country: US (occurrence: US)
  Receive Date: 20190506
  Receipt Date: 20220105
  Transmission Date: 20220423
  Serious: Yes (Death, Other)
  Sender: FDA-Public Use
  Company Number: US-PFIZER INC-2019002075

PATIENT
  Age: 45 Year
  Sex: Female

DRUGS (6)
  1. DOCETAXEL [Suspect]
     Active Substance: DOCETAXEL
     Indication: Breast cancer female
     Dosage: 153 MG, 154 MG, 155 MG, CYCLIC (EVERY THREE WEEKS FOR 12 CYCLES )
     Dates: start: 20130829, end: 20140417
  2. TAXOTERE [Suspect]
     Active Substance: DOCETAXEL
     Indication: Breast cancer female
     Dosage: 153 MG, 154 MG, 155 MG, CYCLIC (EVERY THREE WEEKS FOR 12 CYCLES )
     Dates: start: 20130829, end: 20140417
  3. ADVIL [Concomitant]
     Active Substance: IBUPROFEN
     Dosage: UNK
     Dates: start: 199501
  4. HERCEPTIN [Concomitant]
     Active Substance: TRASTUZUMAB
     Indication: Chemotherapy
     Dosage: UNK
  5. PERTUZUMAB [Concomitant]
     Active Substance: PERTUZUMAB
     Indication: Chemotherapy
     Dosage: UNK
  6. TYLENOL [Concomitant]
     Active Substance: ACETAMINOPHEN
     Dosage: UNK
     Dates: start: 199501

REACTIONS (7)
  - Death [Fatal]
  - Alopecia [Unknown]
  - Hair texture abnormal [Unknown]
  - Hair disorder [Unknown]
  - Hair colour changes [Unknown]
  - Madarosis [Unknown]
  - Neoplasm recurrence [Unknown]

NARRATIVE: CASE EVENT DATE: 20130901
